FAERS Safety Report 6315713-4 (Version None)
Quarter: 2009Q3

REPORT INFORMATION
  Report Type: 
  Country: None (occurrence: None)
  Receive Date: 20090818
  Receipt Date: 20090811
  Transmission Date: 20100115
  Serious: Yes (Hospitalization)
  Sender: FDA-Public Use
  Company Number: 2009050039

PATIENT
  Sex: Female

DRUGS (4)
  1. ASTEPRO [Suspect]
     Dosage: 274 MCG (274 MCG, 1 IN 1 D), IN
     Dates: start: 20090420, end: 20090420
  2. XYZAL [Suspect]
     Indication: HYPERSENSITIVITY
     Dosage: 1 IN 1 D, ORAL
     Route: 048
     Dates: start: 20090420, end: 20090421
  3. BYSTOLIC [Concomitant]
  4. VYTORIN [Concomitant]

REACTIONS (4)
  - HALLUCINATION [None]
  - INSOMNIA [None]
  - NIGHTMARE [None]
  - NOCTURNAL FEAR [None]
